FAERS Safety Report 9701195 (Version 1)
Quarter: 2013Q4

REPORT INFORMATION
  Report Type: Spontaneous
  Country: FR (occurrence: FR)
  Receive Date: 20131121
  Receipt Date: 20131121
  Transmission Date: 20140711
  Serious: Yes (Hospitalization)
  Sender: FDA-Public Use
  Company Number: FR-PFIZER INC-2013327975

PATIENT
  Age: 27 Year
  Sex: Male

DRUGS (9)
  1. SUTENT [Suspect]
     Dosage: 25 MG, UNK
  2. LYRICA [Interacting]
     Dosage: 150 MG, UNK
  3. VIMPAT [Interacting]
     Dosage: 100 MG, UNK
  4. TEGRETOL [Interacting]
     Dosage: 200 MG, UNK
  5. MEDROL [Concomitant]
  6. URBANYL [Concomitant]
     Dosage: 20 MG, UNK
  7. ZOPHREN [Concomitant]
  8. EMEND [Concomitant]
  9. PERIDYS [Concomitant]

REACTIONS (1)
  - Encephalopathy [Unknown]
